FAERS Safety Report 14613459 (Version 1)
Quarter: 2018Q1

REPORT INFORMATION
  Report Type: Spontaneous
  Country: US (occurrence: US)
  Receive Date: 20180308
  Receipt Date: 20180308
  Transmission Date: 20180509
  Serious: No
  Sender: FDA-Public Use
  Company Number: None

PATIENT
  Age: 62 Year
  Sex: Male

DRUGS (1)
  1. CAPECITABINE TAB 500MG [Suspect]
     Active Substance: CAPECITABINE
     Dosage: 1650MG BID FOR 14 DAYS ORAL
     Route: 048

REACTIONS (5)
  - Diarrhoea [None]
  - Vomiting [None]
  - Dehydration [None]
  - Abdominal pain upper [None]
  - Asthenia [None]

NARRATIVE: CASE EVENT DATE: 20180307
